FAERS Safety Report 10245502 (Version 2)
Quarter: 2014Q2

REPORT INFORMATION
  Report Type: Report from Study
  Country: CA (occurrence: CA)
  Receive Date: 20140619
  Receipt Date: 20140619
  Transmission Date: 20141212
  Serious: Yes (Hospitalization, Other)
  Sender: FDA-Public Use
  Company Number: CA-UCBSA-068292

PATIENT
  Age: 61 Year
  Sex: Female
  Weight: 67.7 kg

DRUGS (5)
  1. CERTOLIZUMAB PEGOL RA [Suspect]
     Indication: RHEUMATOID ARTHRITIS
     Dosage: 400 MG, EV 2 WEEKS(QOW)
     Route: 058
     Dates: start: 20120917, end: 20121126
  2. CERTOLIZUMAB PEGOL RA [Suspect]
     Dosage: 200 MG, EV 2 WEEKS(QOW)
     Route: 058
     Dates: start: 20121210, end: 20130801
  3. CERTOLIZUMAB PEGOL RA [Suspect]
     Dosage: UNK
     Route: 058
     Dates: start: 20130924
  4. METHOTREXATE [Concomitant]
     Indication: RHEUMATOID ARTHRITIS
     Dosage: ONCE ON SATURDAYS
     Route: 048
     Dates: start: 201110
  5. PLAQUENIL [Concomitant]
     Indication: RHEUMATOID ARTHRITIS
     Dosage: 300 MG, ONCE DAILY (QD)
     Route: 048
     Dates: start: 201104

REACTIONS (7)
  - Tachycardia [Unknown]
  - Ventricular tachycardia [Unknown]
  - Supraventricular extrasystoles [Unknown]
  - Erythema [Recovered/Resolved]
  - Hypertension [Recovered/Resolved]
  - Headache [Recovered/Resolved]
  - Hot flush [Recovered/Resolved]
